FAERS Safety Report 10518799 (Version 1)
Quarter: 2014Q4

REPORT INFORMATION
  Report Type: Spontaneous
  Country: FI (occurrence: FI)
  Receive Date: 20141015
  Receipt Date: 20141015
  Transmission Date: 20150528
  Serious: Yes (Other)
  Sender: FDA-Public Use
  Company Number: CHPA2014FI013830

PATIENT
  Age: 26 Year
  Sex: Female
  Weight: 50 kg

DRUGS (3)
  1. PURSENNID-EX LAX [Suspect]
     Active Substance: SENNOSIDES A AND B
     Indication: CONSTIPATION
     Dosage: 2 DF, AT A TIME
  2. NUVARING [Concomitant]
     Active Substance: ETHINYL ESTRADIOL\ETONOGESTREL
     Dosage: UNK
  3. PURSENNID-EX LAX [Suspect]
     Active Substance: SENNOSIDES A AND B
     Dosage: 4 DF, AT A TIME
     Dates: start: 20141005, end: 20141005

REACTIONS (5)
  - Overdose [None]
  - Dizziness [Recovered/Resolved]
  - Syncope [Recovered/Resolved]
  - Drug ineffective [Unknown]
  - Incorrect dose administered [Unknown]

NARRATIVE: CASE EVENT DATE: 20141006
